FAERS Safety Report 18536136 (Version 1)
Quarter: 2020Q4

REPORT INFORMATION
  Report Type: Other
  Country: GB (occurrence: GB)
  Receive Date: 20201124
  Receipt Date: 20201124
  Transmission Date: 20210114
  Serious: Yes (Other)
  Sender: FDA-Public Use
  Company Number: GB-ROCHE-2713842

PATIENT
  Sex: Female

DRUGS (11)
  1. AMLODIPINE [Concomitant]
     Active Substance: AMLODIPINE BESYLATE
  2. TRAMIPROSATE. [Concomitant]
     Active Substance: TRAMIPROSATE
  3. ROACTEMRA [Suspect]
     Active Substance: TOCILIZUMAB
     Indication: RHEUMATOID ARTHRITIS
     Route: 058
     Dates: start: 2015
  4. HYDROXYCHLOROQUINE [Concomitant]
     Active Substance: HYDROXYCHLOROQUINE
  5. PREDNISOLONE. [Concomitant]
     Active Substance: PREDNISOLONE
  6. FOLIC ACID. [Concomitant]
     Active Substance: FOLIC ACID
  7. MONOPRIL [Concomitant]
     Active Substance: FOSINOPRIL SODIUM
  8. METHOTREXATE. [Concomitant]
     Active Substance: METHOTREXATE
  9. SOLPADOL (UNITED KINGDOM) [Concomitant]
  10. OMEPRAZOLE. [Concomitant]
     Active Substance: OMEPRAZOLE
  11. PARACETAMOL [Concomitant]
     Active Substance: ACETAMINOPHEN

REACTIONS (2)
  - Bronchiectasis [Unknown]
  - Immunodeficiency [Unknown]
